FAERS Safety Report 9458384 (Version 1)
Quarter: 2013Q3

REPORT INFORMATION
  Report Type: Spontaneous
  Country: US (occurrence: US)
  Receive Date: 20130814
  Receipt Date: 20130814
  Transmission Date: 20140515
  Serious: Yes (Other)
  Sender: FDA-Public Use
  Company Number: US-PFIZER INC-2013226345

PATIENT
  Age: 75 Year
  Sex: Female
  Weight: 56.24 kg

DRUGS (14)
  1. ATENOLOL [Suspect]
     Indication: HYPERTENSION
     Dosage: 12.5 MG, DAILY
     Route: 048
  2. PRILOSEC [Suspect]
     Dosage: 20 MG, 1X/DAY
     Route: 048
     Dates: start: 1998, end: 201306
  3. PRILOSEC [Suspect]
     Dosage: 2 DF, SINGLE
     Route: 048
     Dates: start: 201306, end: 201306
  4. PRILOSEC [Suspect]
     Dosage: 40 MG, 1X/DAY
     Route: 048
     Dates: start: 201306
  5. PRILOSEC [Suspect]
     Dosage: 60 MG, 1X/DAY
     Route: 048
  6. PRILOSEC [Suspect]
     Dosage: 40 MG AND 60 MG, DAILY
     Route: 048
  7. LIBRAX [Concomitant]
     Indication: ABDOMINAL PAIN UPPER
     Dosage: UNK
  8. ATIVAN [Concomitant]
     Indication: DEPRESSION
     Dosage: 4 DF HS
     Route: 048
  9. ATIVAN [Concomitant]
     Indication: ANXIETY
  10. DICYCLOMINE [Concomitant]
     Indication: IRRITABLE BOWEL SYNDROME
     Dosage: 20 MG, DAILY
     Route: 048
  11. LEXAPRO [Concomitant]
     Indication: ANXIETY
     Dosage: 5 MG, DAILY
     Route: 048
  12. ZYPREXA [Concomitant]
     Indication: DEPRESSION
     Dosage: 5 MG, DAILY
     Route: 048
  13. LORTAB [Concomitant]
     Indication: PAIN
     Dosage: 2 TEASPOON AT NIGHT
     Route: 048
  14. COLACE [Concomitant]
     Indication: ABNORMAL FAECES
     Dosage: 20 MG, AS NEEDED
     Route: 048

REACTIONS (11)
  - Fall [Recovering/Resolving]
  - Foot fracture [Unknown]
  - Spinal fracture [Unknown]
  - Pelvic fracture [Unknown]
  - Aphagia [Unknown]
  - Urinary tract infection [Unknown]
  - Polyp [Unknown]
  - Gastrooesophageal reflux disease [Unknown]
  - Abdominal pain upper [Unknown]
  - Nausea [Unknown]
  - Intentional drug misuse [Unknown]
